FAERS Safety Report 4641087-0 (Version None)
Quarter: 2005Q2

REPORT INFORMATION
  Report Type: 
  Country: None (occurrence: None)
  Receive Date: 20050324
  Receipt Date: 20050127
  Transmission Date: 20051028
  Serious: Yes (Hospitalization)
  Sender: FDA-Public Use
  Company Number: 212054

PATIENT
  Age: 55 Year
  Sex: Female

DRUGS (9)
  1. AVASTIN [Suspect]
     Indication: COLON CANCER METASTATIC
     Dosage: 300 MG, Q2W
     Dates: start: 20041018, end: 20041227
  2. CPT-11 (IRINOTECAN HYDROCHLORIDE) [Concomitant]
  3. FLUOROURACIL [Concomitant]
  4. LEUCOVORIN CALCIUM [Concomitant]
  5. COMPAZINE [Concomitant]
  6. RESTORIL [Concomitant]
  7. KADIAN [Concomitant]
  8. LORTAB [Concomitant]
  9. BLOOD PRESSURE MEDICATION NOS (ANTIHYPERTENSIVE NOS) [Concomitant]

REACTIONS (1)
  - PULMONARY EMBOLISM [None]
